FAERS Safety Report 20155585 (Version 1)
Quarter: 2021Q4

REPORT INFORMATION
  Report Type: Spontaneous
  Country: US (occurrence: None)
  Receive Date: 20211206
  Receipt Date: 20211206
  Transmission Date: 20220303
  Serious: Yes (Life-Threatening, Hospitalization)
  Sender: FDA-Public Use
  Company Number: None

PATIENT
  Age: 68 Year
  Sex: Male

DRUGS (1)
  1. TECARTUS [Suspect]
     Active Substance: BREXUCABTAGENE AUTOLEUCEL
     Indication: Mantle cell lymphoma
     Route: 042
     Dates: start: 20210903, end: 20210903

REACTIONS (6)
  - Hypoxia [None]
  - Neurotoxicity [None]
  - Hypotension [None]
  - Anaemia [None]
  - Retroperitoneal haemorrhage [None]
  - Cytokine release syndrome [None]

NARRATIVE: CASE EVENT DATE: 20210904
